FAERS Safety Report 23240182 (Version 1)
Quarter: 2023Q4

REPORT INFORMATION
  Report Type: Spontaneous
  Country: NO (occurrence: NO)
  Receive Date: 20231129
  Receipt Date: 20231129
  Transmission Date: 20240109
  Serious: Yes (Life-Threatening, Hospitalization, Other)
  Sender: FDA-Public Use
  Company Number: None

PATIENT
  Sex: Female
  Weight: 67 kg

DRUGS (2)
  1. ETHINYL ESTRADIOL\LEVONORGESTREL [Suspect]
     Active Substance: ETHINYL ESTRADIOL\LEVONORGESTREL
     Indication: Contraception
     Dosage: UNK
     Dates: start: 20210406
  2. COMIRNATY (TOZINAMERAN) [Suspect]
     Active Substance: TOZINAMERAN
     Indication: Immunisation
     Dosage: DOSE NO. IN SERIES: 1 VACCINATION SITE: RIGHTARM
     Route: 030
     Dates: start: 20210902

REACTIONS (17)
  - Impaired quality of life [Unknown]
  - Syncope [Unknown]
  - Headache [Not Recovered/Not Resolved]
  - Syncope [Unknown]
  - Chest pain [Unknown]
  - Heart rate increased [Not Recovered/Not Resolved]
  - Atrioventricular block [Not Recovered/Not Resolved]
  - Pulmonary embolism [Recovered/Resolved with Sequelae]
  - Dyspnoea [Unknown]
  - Heart rate increased [Unknown]
  - General physical health deterioration [Unknown]
  - Heart rate irregular [Not Recovered/Not Resolved]
  - Fatigue [Not Recovered/Not Resolved]
  - Exercise tolerance decreased [Unknown]
  - Painful respiration [Unknown]
  - Dizziness [Not Recovered/Not Resolved]
  - Educational problem [Unknown]

NARRATIVE: CASE EVENT DATE: 20210901
